FAERS Safety Report 8512981 (Version 2)
Quarter: 2012Q4

REPORT INFORMATION
  Report Type: 
  Country: JP (occurrence: JP)
  Receive Date: 20120413
  Receipt Date: 20121220
  Transmission Date: 20130627
  Serious: Yes (Death, Other)
  Sender: FDA-Public Use
  Company Number: JP-ALLERGAN-1205275US

PATIENT
  Age: 81 Year
  Sex: Male
  Weight: 37 kg

DRUGS (11)
  1. BOTOX [Suspect]
     Indication: MUSCLE SPASMS
     Dosage: 100 UNITS, single
     Route: 030
     Dates: start: 20120227, end: 20120227
  2. MENESIT [Concomitant]
     Indication: DRUG USE FOR UNKNOWN INDICATION
     Dosage: 100 mg, tid
     Route: 048
     Dates: end: 20120331
  3. MUCODYNE [Concomitant]
     Indication: DRUG USE FOR UNKNOWN INDICATION
     Dosage: 500 mg, tid
     Route: 048
     Dates: end: 20120331
  4. BISOLVON [Concomitant]
     Indication: DRUG USE FOR UNKNOWN INDICATION
     Dosage: 4 mg, qid
     Route: 048
     Dates: end: 20120331
  5. MIYA-BM [Concomitant]
     Indication: DRUG USE FOR UNKNOWN INDICATION
     Dosage: 1000 mg, tid
     Dates: end: 20120331
  6. URSO [Concomitant]
     Indication: DRUG USE FOR UNKNOWN INDICATION
     Dosage: 200 mg, tid
     Dates: end: 20120331
  7. TAKEPRON [Concomitant]
     Indication: DRUG USE FOR UNKNOWN INDICATION
     Dosage: 15 mg, qd
     Route: 048
     Dates: end: 20120331
  8. MINERALIN [Concomitant]
     Indication: DRUG USE FOR UNKNOWN INDICATION
     Dosage: 2 ml, qd
     Route: 042
     Dates: end: 20120331
  9. FUROSEMIDE [Concomitant]
     Indication: DRUG USE FOR UNKNOWN INDICATION
     Dosage: 10 mg, qd
     Dates: end: 20120331
  10. VFEND [Concomitant]
     Indication: DRUG USE FOR UNKNOWN INDICATION
     Dosage: 100 mg, bid
     Route: 048
     Dates: end: 20120312
  11. FULCALIQ [Concomitant]
     Indication: DRUG USE FOR UNKNOWN INDICATION
     Dosage: 903 ml, bid
     Route: 042
     Dates: end: 20120312

REACTIONS (3)
  - Chronic respiratory failure [Fatal]
  - Pneumonia [Recovered/Resolved]
  - Oedema [Recovered/Resolved]
